FAERS Safety Report 4372789-1 (Version None)
Quarter: 2004Q2

REPORT INFORMATION
  Report Type: 
  Country: None (occurrence: None)
  Receive Date: 20040526
  Receipt Date: 20040511
  Transmission Date: 20050107
  Serious: Yes (Hospitalization)
  Sender: FDA-Public Use
  Company Number: 195090

PATIENT
  Age: 29 Year
  Sex: Male

DRUGS (1)
  1. AVONEX [Suspect]
     Indication: MULTIPLE SCLEROSIS
     Dosage: 30 MCG QW IM
     Route: 030
     Dates: start: 20010716

REACTIONS (7)
  - BLADDER DISORDER [None]
  - BLADDER PAIN [None]
  - COGNITIVE DISORDER [None]
  - DYSURIA [None]
  - MEMORY IMPAIRMENT [None]
  - URINARY RETENTION [None]
  - URINARY TRACT INFECTION [None]
